FAERS Safety Report 20749984 (Version 1)
Quarter: 2022Q2

REPORT INFORMATION
  Report Type: Spontaneous
  Country: GB (occurrence: GB)
  Receive Date: 20220426
  Receipt Date: 20220426
  Transmission Date: 20220720
  Serious: Yes (Disabling)
  Sender: FDA-Public Use
  Company Number: None

PATIENT
  Age: 74 Year
  Sex: Female
  Weight: 68 kg

DRUGS (13)
  1. TRAZODONE [Suspect]
     Active Substance: TRAZODONE HYDROCHLORIDE
     Indication: Product used for unknown indication
     Dosage: 2 DOSAGE FORM, QD
     Dates: start: 20220316
  2. ATORVASTATIN [Concomitant]
     Active Substance: ATORVASTATIN
     Dosage: 1 DOSAGE FORM, QD
     Dates: start: 20220110
  3. IBUPROFEN [Concomitant]
     Active Substance: IBUPROFEN
     Dosage: 1 DOSAGE FORM, TID
     Dates: start: 20220204, end: 20220401
  4. BECLOMETHASONE\FORMOTEROL [Concomitant]
     Active Substance: BECLOMETHASONE\FORMOTEROL
     Dosage: 1 DOSAGE FORM, BID
     Dates: start: 20220110
  5. GLICLAZIDE [Concomitant]
     Active Substance: GLICLAZIDE
     Dosage: 1 DOSAGE FORM, QD
     Dates: start: 20220110
  6. HYPROMELLOSES [Concomitant]
     Active Substance: HYPROMELLOSES
     Dosage: 1 DOSAGE FORM, PRN (AS NECESSARY)
     Dates: start: 20220110
  7. LANSOPRAZOLE [Concomitant]
     Active Substance: LANSOPRAZOLE
     Dosage: 1 DOSAGE FORM, QD
     Dates: start: 20220110
  8. LINAGLIPTIN [Concomitant]
     Active Substance: LINAGLIPTIN
     Dosage: 1 DOSAGE FORM, QD
     Dates: start: 20220110
  9. LOSARTAN [Concomitant]
     Active Substance: LOSARTAN
     Dosage: 1 DOSAGE FORM, QD
     Dates: start: 20220110
  10. ACETAMINOPHEN [Concomitant]
     Active Substance: ACETAMINOPHEN
     Dosage: TAKE ONE OR TWO TABLETS EVERY FOUR TO SIX HOURS
     Dates: start: 20220110
  11. QUININE [Concomitant]
     Active Substance: QUININE
     Dosage: 1 DOSAGE FORM, QD (AT NIGHT)
     Dates: start: 20220110
  12. SENNA [Concomitant]
     Active Substance: SENNA LEAF\SENNOSIDES\SENNOSIDES A AND B
     Dosage: (TAKE ONE OR TWO TABLETS AT NIGHT), HS
     Dates: start: 20220110
  13. SERTRALINE [Concomitant]
     Active Substance: SERTRALINE HYDROCHLORIDE
     Dosage: 1 DOSAGE FORM, QD
     Dates: start: 20220414

REACTIONS (2)
  - Feeling drunk [Unknown]
  - Sedation complication [Recovered/Resolved]

NARRATIVE: CASE EVENT DATE: 20220414
